FAERS Safety Report 8179765-1 (Version None)
Quarter: 2012Q1

REPORT INFORMATION
  Report Type: 
  Country: None (occurrence: None)
  Receive Date: 20120229
  Receipt Date: 20120215
  Transmission Date: 20120608
  Serious: Yes (Hospitalization, Other)
  Sender: FDA-Public Use
  Company Number: 2012P1003757

PATIENT
  Age: 75 Year
  Sex: Male
  Weight: 98.8842 kg

DRUGS (4)
  1. UNSPECIFIED BLOOD PRESSURE MEDICATIONS (NO PREF. NAME) [Suspect]
     Indication: HYPERTENSION
  2. LODINE [Suspect]
     Indication: ARTHRITIS
  3. ETODOLAC [Suspect]
     Indication: ARTHRITIS
  4. UNSPECIFIED MEDICATIONS [Concomitant]

REACTIONS (4)
  - DRUG INEFFECTIVE [None]
  - BRAIN NEOPLASM [None]
  - BLOOD PRESSURE FLUCTUATION [None]
  - BLOOD CREATININE INCREASED [None]
